FAERS Safety Report 21423213 (Version 1)
Quarter: 2022Q4

REPORT INFORMATION
  Report Type: Spontaneous
  Country: US (occurrence: None)
  Receive Date: 20221006
  Receipt Date: 20221006
  Transmission Date: 20230113
  Serious: Yes (Other)
  Sender: FDA-Public Use
  Company Number: None

PATIENT
  Age: 82 Year
  Sex: Male

DRUGS (1)
  1. XELJANZ XR [Suspect]
     Active Substance: TOFACITINIB CITRATE
     Indication: Osteoarthritis
     Dosage: FREQUENCY : DAILY;?
     Route: 048
     Dates: start: 20220707, end: 20220923

REACTIONS (2)
  - Blood urine present [None]
  - Therapy cessation [None]

NARRATIVE: CASE EVENT DATE: 20220909
